FAERS Safety Report 19354377 (Version 3)
Quarter: 2021Q2

REPORT INFORMATION
  Report Type: Spontaneous
  Country: CA (occurrence: CA)
  Receive Date: 20210602
  Receipt Date: 20210625
  Transmission Date: 20210717
  Serious: Yes (Other)
  Sender: FDA-Public Use
  Company Number: CA-CELLTRION INC.-2020CA019929

PATIENT

DRUGS (18)
  1. CODEINE [Concomitant]
     Active Substance: CODEINE
     Dosage: 2 TABS, DAILY
     Route: 065
  2. TECTA [Concomitant]
     Active Substance: PANTOPRAZOLE MAGNESIUM
     Dosage: UNK
  3. TETRA [TETRACYCLINE HYDROCHLORIDE] [Concomitant]
     Active Substance: TETRACYCLINE HYDROCHLORIDE
     Dosage: UNK
     Route: 065
  4. FOLIC ACID. [Concomitant]
     Active Substance: FOLIC ACID
     Dosage: UNK
     Route: 065
  5. PANTOPRAZOLE [Concomitant]
     Active Substance: PANTOPRAZOLE
     Dosage: 40 MG, 1X/DAY
     Route: 048
  6. INFLECTRA [Suspect]
     Active Substance: INFLIXIMAB-DYYB
     Indication: CROHN^S DISEASE
     Dosage: 800 MG EVERY 6 WEEKS
     Route: 042
  7. INFLECTRA [Suspect]
     Active Substance: INFLIXIMAB-DYYB
     Dosage: 400 MG, EVERY 8 WEEKS
     Route: 042
     Dates: start: 20200430, end: 20200430
  8. INFLECTRA [Suspect]
     Active Substance: INFLIXIMAB-DYYB
     Dosage: 400 MG EVERY 6 WEEKS
     Route: 042
     Dates: start: 20200930
  9. INFLECTRA [Suspect]
     Active Substance: INFLIXIMAB-DYYB
     Dosage: 400 MG EVERY 6 WEEKS
     Route: 042
     Dates: start: 20210610
  10. INFLECTRA [Suspect]
     Active Substance: INFLIXIMAB-DYYB
     Dosage: 400 MG EVERY 6 WEEKS
     Route: 042
     Dates: start: 20210204
  11. METHOTREXATE. [Concomitant]
     Active Substance: METHOTREXATE
     Dosage: UNK, WEEKLY
     Route: 065
  12. INFLECTRA [Suspect]
     Active Substance: INFLIXIMAB-DYYB
     Dosage: 400 MG EVERY 6 WEEKS
     Route: 042
     Dates: start: 20210429
  13. METHOTREXATE. [Concomitant]
     Active Substance: METHOTREXATE
     Dosage: 10 MG, WEEKLY
     Route: 048
  14. INFLECTRA [Suspect]
     Active Substance: INFLIXIMAB-DYYB
     Dosage: 400 MG, EVERY 8 WEEKS
     Route: 042
     Dates: start: 20200625, end: 20200625
  15. INFLECTRA [Suspect]
     Active Substance: INFLIXIMAB-DYYB
     Dosage: 400 MG EVERY 8 WEEKS
     Route: 042
     Dates: start: 20200820, end: 20200820
  16. METHOTREXATE. [Concomitant]
     Active Substance: METHOTREXATE
     Dosage: 15 MG, WEEKLY
     Route: 048
  17. REMICADE [Concomitant]
     Active Substance: INFLIXIMAB
     Dosage: 800 MG, EVERY 8 WEEKS
     Route: 065
  18. VIT D [Concomitant]
     Active Substance: VITAMIN D NOS
     Dosage: UNK
     Route: 065

REACTIONS (13)
  - Therapeutic response shortened [Not Recovered/Not Resolved]
  - Fatigue [Unknown]
  - Oedema peripheral [Unknown]
  - Condition aggravated [Recovering/Resolving]
  - Drug level increased [Unknown]
  - Off label use [Unknown]
  - Weight increased [Unknown]
  - Pyoderma gangrenosum [Unknown]
  - Insomnia [Unknown]
  - Drug monitoring procedure incorrectly performed [Unknown]
  - Arthralgia [Unknown]
  - Peripheral swelling [Unknown]
  - Blister [Unknown]

NARRATIVE: CASE EVENT DATE: 201906
